FAERS Safety Report 8774271 (Version 1)
Quarter: 2012Q4

REPORT INFORMATION
  Report Type: 
  Country: DK (occurrence: FR)
  Receive Date: 20120907
  Receipt Date: 20120907
  Transmission Date: 20130627
  Serious: Yes (Other)
  Sender: FDA-Public Use
  Company Number: FR-FRI-1000038416

PATIENT
  Sex: Female

DRUGS (8)
  1. ESCITALOPRAM [Suspect]
     Route: 048
     Dates: end: 201206
  2. SURGAM [Suspect]
     Route: 048
     Dates: end: 201206
  3. INEGY [Concomitant]
  4. CRESTOR [Concomitant]
  5. LEVOTHYROX [Concomitant]
  6. DAFLON [Concomitant]
  7. BROMAZEPAM [Concomitant]
  8. TANAKAN [Concomitant]

REACTIONS (3)
  - Erythema [Recovered/Resolved]
  - Skin oedema [Recovered/Resolved]
  - Pruritus [Recovered/Resolved]
